FAERS Safety Report 9593141 (Version 1)
Quarter: 2013Q4

REPORT INFORMATION
  Report Type: Spontaneous
  Country: US (occurrence: US)
  Receive Date: 20131004
  Receipt Date: 20131004
  Transmission Date: 20140711
  Serious: Yes (Other)
  Sender: FDA-Public Use
  Company Number: US-PFIZER INC-2013284226

PATIENT
  Age: 56 Year
  Sex: Female
  Weight: 71.66 kg

DRUGS (2)
  1. CHANTIX [Suspect]
     Indication: SMOKING CESSATION THERAPY
     Dosage: 0.5 MG, 1X/DAY
     Route: 048
  2. CYMBALTA [Concomitant]
     Indication: DEPRESSION
     Dosage: UNK

REACTIONS (5)
  - Blindness unilateral [Unknown]
  - Retinal haemorrhage [Unknown]
  - Pseudoxanthoma elasticum [Unknown]
  - Cough [Unknown]
  - Bronchitis [Unknown]
